FAERS Safety Report 16439690 (Version 2)
Quarter: 2020Q2

REPORT INFORMATION
  Report Type: Spontaneous
  Country: US (occurrence: US)
  Receive Date: 20190617
  Receipt Date: 20200526
  Transmission Date: 20200713
  Serious: No
  Sender: FDA-Public Use
  Company Number: US-MYLANLABS-2019M1052556

PATIENT
  Sex: Female
  Weight: 44 kg

DRUGS (1)
  1. BUPROPION. [Suspect]
     Active Substance: BUPROPION
     Indication: SMOKING CESSATION THERAPY
     Dosage: UNK
     Route: 065

REACTIONS (2)
  - Adverse event [Recovered/Resolved]
  - Drug ineffective for unapproved indication [Not Recovered/Not Resolved]
